FAERS Safety Report 6261934-9 (Version None)
Quarter: 2009Q3

REPORT INFORMATION
  Report Type: 
  Country: None (occurrence: None)
  Receive Date: 20090709
  Receipt Date: 20090304
  Transmission Date: 20100115
  Serious: Yes (Death)
  Sender: FDA-Public Use
  Company Number: B0582778A

PATIENT
  Age: 76 Year
  Sex: Male
  Weight: 80 kg

DRUGS (4)
  1. OMACOR [Suspect]
     Dosage: 1000MG PER DAY
     Route: 048
     Dates: start: 20040924, end: 20050321
  2. BETA BLOCKER [Concomitant]
     Dates: start: 20050321
  3. ASPIRIN [Concomitant]
     Dates: start: 20050321
  4. CLOPIDOGREL [Concomitant]
     Dates: end: 20050321

REACTIONS (1)
  - SUDDEN CARDIAC DEATH [None]
